FAERS Safety Report 6649440-0 (Version None)
Quarter: 2010Q1

REPORT INFORMATION
  Report Type: 
  Country: None (occurrence: None)
  Receive Date: 20100322
  Receipt Date: 20100309
  Transmission Date: 20100710
  Serious: Yes (Death)
  Sender: FDA-Public Use
  Company Number: 230115M10USA

PATIENT
  Age: 65 Year
  Sex: Male

DRUGS (3)
  1. REBIF [Suspect]
     Indication: MULTIPLE SCLEROSIS
     Dosage: NOT REPORTED, NOT REPORTED, NOT REPORTED
     Dates: end: 20070101
  2. UNSPECIFIED MULTIPLE SCLEROSIS MEDICATIONS (ALL OTHER THERAPUTIC PRODU [Concomitant]
  3. UNSPECIFIED CANCER MEDICATIONS (ALL OTHER THERAPEUTIC PRODUCTS) [Concomitant]

REACTIONS (1)
  - NON-SMALL CELL LUNG CANCER METASTATIC [None]
